FAERS Safety Report 10282690 (Version 1)
Quarter: 2014Q3

REPORT INFORMATION
  Report Type: Spontaneous
  Country: JP (occurrence: JP)
  Receive Date: 20140707
  Receipt Date: 20140707
  Transmission Date: 20150326
  Serious: Yes (Other)
  Sender: FDA-Public Use
  Company Number: JP-BRISTOL-MYERS SQUIBB COMPANY-21172218

PATIENT
  Age: 92 Year
  Sex: Female
  Weight: 40 kg

DRUGS (7)
  1. MAGNESIUM OXIDE. [Concomitant]
     Active Substance: MAGNESIUM OXIDE
  2. SENNOSIDE [Concomitant]
     Active Substance: SENNOSIDES
  3. AMLODIPINE [Concomitant]
     Active Substance: AMLODIPINE BESYLATE
  4. LANSOPRAZOLE. [Concomitant]
     Active Substance: LANSOPRAZOLE
  5. ELIQUIS [Suspect]
     Active Substance: APIXABAN
     Dosage: TABLETS
     Route: 048
     Dates: start: 20140629, end: 20140630
  6. ENALAPRIL [Concomitant]
     Active Substance: ENALAPRIL
  7. FRANDOL TAPE S [Concomitant]
     Active Substance: ISOSORBIDE DINITRATE

REACTIONS (1)
  - Ileus [Unknown]

NARRATIVE: CASE EVENT DATE: 20140630
